FAERS Safety Report 7977370-0 (Version None)
Quarter: 2011Q4

REPORT INFORMATION
  Report Type: 
  Country: None (occurrence: None)
  Receive Date: 20111213
  Receipt Date: 20060705
  Transmission Date: 20120403
  Serious: Yes (Death)
  Sender: FDA-Public Use
  Company Number: PHHY2006CL009319

PATIENT
  Age: 61 Year

DRUGS (1)
  1. TRILEPTAL [Suspect]

REACTIONS (1)
  - BREAST CANCER [None]
